FAERS Safety Report 14788482 (Version 1)
Quarter: 2018Q2

REPORT INFORMATION
  Report Type: Spontaneous
  Country: US (occurrence: US)
  Receive Date: 20180423
  Receipt Date: 20180423
  Transmission Date: 20180711
  Serious: No
  Sender: FDA-Public Use
  Company Number: US-UNITED THERAPEUTICS-UNT-2018-005476

PATIENT
  Sex: Female
  Weight: 86.17 kg

DRUGS (1)
  1. REMODULIN [Suspect]
     Active Substance: TREPROSTINIL
     Indication: PULMONARY ARTERIAL HYPERTENSION
     Dosage: 0.055 ?G/KG, CONTINUING
     Route: 041
     Dates: start: 20110325

REACTIONS (1)
  - Herpes zoster [Unknown]
